FAERS Safety Report 21398978 (Version 1)
Quarter: 2022Q4

REPORT INFORMATION
  Report Type: Spontaneous
  Country: PL (occurrence: PL)
  Receive Date: 20221001
  Receipt Date: 20221001
  Transmission Date: 20230112
  Serious: Yes (Hospitalization, Other)
  Sender: FDA-Public Use
  Company Number: PL-JNJFOC-20220931952

PATIENT
  Age: 69 Year
  Sex: Female

DRUGS (1)
  1. IMBRUVICA [Suspect]
     Active Substance: IBRUTINIB
     Indication: Chronic lymphocytic leukaemia
     Route: 048
     Dates: start: 20190716

REACTIONS (10)
  - Coma [Unknown]
  - Weight decreased [Unknown]
  - Hypercalcaemia [Unknown]
  - Dissociation [Unknown]
  - Speech disorder [Unknown]
  - Dizziness [Unknown]
  - Disease progression [Unknown]
  - Night sweats [Unknown]
  - Balance disorder [Unknown]
  - Cerebrovascular accident [Unknown]

NARRATIVE: CASE EVENT DATE: 20210901
